FAERS Safety Report 13595030 (Version 4)
Quarter: 2017Q3

REPORT INFORMATION
  Report Type: Spontaneous
  Country: CO (occurrence: CO)
  Receive Date: 20170531
  Receipt Date: 20170719
  Transmission Date: 20171127
  Serious: Yes (Other)
  Sender: FDA-Public Use
  Company Number: PHHY2017CO074642

PATIENT
  Age: 36 Year
  Sex: Female

DRUGS (1)
  1. EVEROLIMUS [Suspect]
     Active Substance: EVEROLIMUS
     Indication: BREAST CANCER METASTATIC
     Dosage: 10 MG, UNK
     Route: 048

REACTIONS (12)
  - Metastases to liver [Unknown]
  - Mucosal inflammation [Unknown]
  - Gastric ulcer [Recovered/Resolved]
  - Pharyngeal inflammation [Unknown]
  - Gastric ulcer [Unknown]
  - Blister [Recovered/Resolved]
  - Blister [Unknown]
  - Skin ulcer [Recovered/Resolved]
  - Mucosal inflammation [Recovered/Resolved]
  - Pharyngeal inflammation [Recovered/Resolved]
  - Skin ulcer [Unknown]
  - Diarrhoea [Unknown]
